FAERS Safety Report 5018033-3 (Version None)
Quarter: 2006Q2

REPORT INFORMATION
  Report Type: 
  Country: None (occurrence: None)
  Receive Date: 20060605
  Receipt Date: 20060214
  Transmission Date: 20061013
  Serious: Yes (Life-Threatening, Hospitalization, Disabling, Other)
  Sender: FDA-Public Use
  Company Number: US-MERCK-0602USA04269

PATIENT
  Age: 58 Year
  Sex: Male
  Weight: 51 kg

DRUGS (9)
  1. CRIXIVAN [Suspect]
     Indication: HIV INFECTION
     Route: 048
     Dates: start: 20060123, end: 20060130
  2. NORVIR [Concomitant]
     Indication: HIV INFECTION
     Route: 048
     Dates: start: 20060123, end: 20060130
  3. COMBIVIR [Concomitant]
     Indication: HIV INFECTION
     Route: 048
     Dates: start: 20060123, end: 20060130
  4. DILANTIN [Concomitant]
     Indication: CONVULSION
     Route: 048
     Dates: start: 20060123, end: 20060227
  5. DELTASONE [Concomitant]
     Indication: DERMATITIS
     Route: 048
     Dates: start: 20060123, end: 20060125
  6. CYMBALTA [Concomitant]
     Indication: DEPRESSION
     Route: 048
     Dates: start: 20060123, end: 20060424
  7. REYATAZ [Concomitant]
     Route: 065
  8. EMTRIVA [Concomitant]
     Route: 065
  9. VIREAD [Concomitant]
     Route: 065

REACTIONS (3)
  - NEPHRITIS INTERSTITIAL [None]
  - NEPHROLITHIASIS [None]
  - RENAL FAILURE ACUTE [None]
